FAERS Safety Report 8531374-8 (Version None)
Quarter: 2012Q3

REPORT INFORMATION
  Report Type: 
  Country: None (occurrence: None)
  Receive Date: 20120723
  Receipt Date: 20120712
  Transmission Date: 20120928
  Serious: Yes (Hospitalization, Other)
  Sender: FDA-Public Use
  Company Number: US-ACTELION-A-NJ2011-48973

PATIENT

DRUGS (14)
  1. CRESTOR [Concomitant]
  2. COZAAR [Concomitant]
  3. TRACLEER [Suspect]
     Dosage: 62.5 MG, BID
     Route: 048
     Dates: start: 20110713, end: 20110801
  4. REVATIO [Concomitant]
  5. SIMVASTATIN [Concomitant]
  6. TRACLEER [Suspect]
     Indication: PULMONARY ARTERIAL HYPERTENSION
     Dosage: 125 MG, BID
     Route: 048
     Dates: start: 20110801
  7. TRACLEER [Suspect]
     Dosage: 125 MG, BID
     Route: 048
     Dates: start: 20100701, end: 20110511
  8. PLAVIX [Concomitant]
  9. SPIRONOLACTONE [Concomitant]
  10. FUROSEMIDE [Concomitant]
  11. TRACLEER [Suspect]
     Dosage: UNK
     Route: 048
     Dates: start: 20110101
  12. REQUIP [Concomitant]
  13. DIGOXIN [Concomitant]
  14. HYDRALAZINE HCL [Concomitant]

REACTIONS (9)
  - LASER THERAPY [None]
  - CONDITION AGGRAVATED [None]
  - OEDEMA PERIPHERAL [None]
  - PLEURAL EFFUSION [None]
  - SKIN DISCOLOURATION [None]
  - LOCALISED INFECTION [None]
  - SWELLING [None]
  - DYSPNOEA [None]
  - FLUID RETENTION [None]
